FAERS Safety Report 8622085-9 (Version None)
Quarter: 2012Q3

REPORT INFORMATION
  Report Type: 
  Country: None (occurrence: None)
  Receive Date: 20120822
  Receipt Date: 20120822
  Transmission Date: 20120928
  Serious: Yes (Disabling)
  Sender: FDA-Public Use
  Company Number: None

PATIENT
  Age: 59 Year
  Sex: Female
  Weight: 69.4003 kg

DRUGS (2)
  1. CYMBALTA [Suspect]
     Indication: FIBROMYALGIA
     Dosage: 1 DAILY PO
     Dates: start: 20120406, end: 20120812
  2. CYMBALTA [Suspect]
     Indication: NEUROPATHY PERIPHERAL
     Dosage: 1 DAILY PO
     Dates: start: 20120406, end: 20120812

REACTIONS (3)
  - FATIGUE [None]
  - DYSKINESIA [None]
  - FIBROMYALGIA [None]
